FAERS Safety Report 14752053 (Version 2)
Quarter: 2018Q2

REPORT INFORMATION
  Report Type: Spontaneous
  Country: ES (occurrence: ES)
  Receive Date: 20180412
  Receipt Date: 20180418
  Transmission Date: 20180711
  Serious: Yes (Death, Hospitalization, Other)
  Sender: FDA-Public Use
  Company Number: ES-GILEAD-2018-0332059

PATIENT
  Age: 62 Year
  Sex: Female

DRUGS (4)
  1. ZYDELIG [Suspect]
     Active Substance: IDELALISIB
     Indication: CHRONIC LYMPHOCYTIC LEUKAEMIA
     Dosage: 150 MG, UNK
     Route: 048
     Dates: start: 20161222, end: 20180226
  2. LEVOSIMENDAN [Concomitant]
     Active Substance: LEVOSIMENDAN
  3. EDOXABAN [Concomitant]
     Active Substance: EDOXABAN TOSYLATE
  4. DOPAMINE [Concomitant]
     Active Substance: DOPAMINE\DOPAMINE HYDROCHLORIDE

REACTIONS (6)
  - Cardiac failure [Fatal]
  - Chronic kidney disease [Unknown]
  - Disorientation [Fatal]
  - General physical health deterioration [Fatal]
  - Hypotension [Fatal]
  - Arrhythmia [Fatal]

NARRATIVE: CASE EVENT DATE: 20180223
